FAERS Safety Report 7134241-X (Version None)
Quarter: 2010Q4

REPORT INFORMATION
  Report Type: 
  Country: None (occurrence: None)
  Receive Date: 20101203
  Receipt Date: 20101123
  Transmission Date: 20110411
  Serious: Yes (Hospitalization)
  Sender: FDA-Public Use
  Company Number: US-NOVOPROD-318936

PATIENT
  Sex: Male
  Weight: 124.72 kg

DRUGS (6)
  1. VICTOZA [Suspect]
     Indication: TYPE 2 DIABETES MELLITUS
     Dosage: 0.6 MG, QD
     Route: 058
     Dates: start: 20101109, end: 20101112
  2. VICTOZA [Suspect]
     Indication: OVERWEIGHT
     Dosage: 1.2 MG, QD
     Route: 058
     Dates: start: 20101112, end: 20101116
  3. DIOVAN HCT [Concomitant]
     Indication: BLOOD PRESSURE INCREASED
     Dosage: 160/12.5 MG, QD
     Route: 048
  4. CLONIDINE HCL [Concomitant]
     Indication: BLOOD PRESSURE INCREASED
     Dosage: 0.2 MG, BID
     Route: 048
  5. METFORMIN [Concomitant]
     Indication: TYPE 2 DIABETES MELLITUS
     Dosage: 500 MG, QD
     Route: 048
  6. GLIPIZIDE [Concomitant]
     Indication: TYPE 2 DIABETES MELLITUS
     Dosage: 2.5 MG, QD
     Route: 048

REACTIONS (1)
  - PANCREATITIS [None]
